FAERS Safety Report 21091380 (Version 1)
Quarter: 2022Q3

REPORT INFORMATION
  Report Type: Report from Study
  Country: BR (occurrence: BR)
  Receive Date: 20220716
  Receipt Date: 20220716
  Transmission Date: 20221026
  Serious: Yes (Other)
  Sender: FDA-Public Use
  Company Number: BR-UCBSA-2022039081

PATIENT
  Weight: 1 kg

DRUGS (5)
  1. CERTOLIZUMAB PEGOL [Suspect]
     Active Substance: CERTOLIZUMAB PEGOL
     Indication: Psoriatic arthropathy
     Dosage: 200 MILLIGRAM, WEEKLY (QW)
     Route: 064
     Dates: start: 2021, end: 2021
  2. GABAPENTIN [Concomitant]
     Active Substance: GABAPENTIN
     Indication: Pain
  3. GABAPENTIN [Concomitant]
     Active Substance: GABAPENTIN
     Indication: Movement disorder
  4. PREDNISONE [Concomitant]
     Active Substance: PREDNISONE
     Indication: Hypersensitivity
  5. CYCLOSPORINE [Concomitant]
     Active Substance: CYCLOSPORINE
     Indication: Psoriatic arthropathy

REACTIONS (4)
  - Premature baby [Unknown]
  - Low birth weight baby [Unknown]
  - Maternal exposure before pregnancy [Unknown]
  - Maternal exposure during pregnancy [Unknown]

NARRATIVE: CASE EVENT DATE: 20210101
